FAERS Safety Report 19156275 (Version 1)
Quarter: 2021Q2

REPORT INFORMATION
  Report Type: Spontaneous
  Country: CN (occurrence: CN)
  Receive Date: 20210419
  Receipt Date: 20210419
  Transmission Date: 20210717
  Serious: Yes (Other)
  Sender: FDA-Public Use
  Company Number: CN-FRESENIUS KABI-FK202103895

PATIENT
  Age: 45 Year
  Sex: Female
  Weight: 60 kg

DRUGS (8)
  1. PROPOFOL (MANUFACTURER UNKNOWN) [Suspect]
     Active Substance: PROPOFOL
     Dosage: 6?7 MG/KG/H
     Route: 065
  2. PROPOFOL (MANUFACTURER UNKNOWN) [Suspect]
     Active Substance: PROPOFOL
     Indication: GENERAL ANAESTHESIA
     Route: 042
  3. HYOSCINE BUTYLBROMIDE [Concomitant]
     Active Substance: BUTYLSCOPOLAMINE BROMIDE
     Indication: PRODUCT USED FOR UNKNOWN INDICATION
     Route: 065
  4. DEXAMETHASONE. [Concomitant]
     Active Substance: DEXAMETHASONE
     Indication: PRODUCT USED FOR UNKNOWN INDICATION
     Route: 065
  5. ROCURONIUM [Concomitant]
     Active Substance: ROCURONIUM BROMIDE
     Indication: ENDOTRACHEAL INTUBATION
     Route: 065
  6. REMIFENTANIL (MANUFACTURER UNKNOWN) [Suspect]
     Active Substance: REMIFENTANIL
     Indication: GENERAL ANAESTHESIA
     Dosage: 0.15?0.2 UG/KG/MIN
     Route: 065
  7. SODIUM LACTATE/POTASSIUM CHLORIDE/CALCIUM CHLORIDE [Concomitant]
     Active Substance: CALCIUM CHLORIDE\POTASSIUM CHLORIDE\SODIUM LACTATE
     Indication: PRODUCT USED FOR UNKNOWN INDICATION
     Route: 042
  8. FENTANYL (MANUFACTURER UNKNOWN) [Suspect]
     Active Substance: FENTANYL
     Indication: GENERAL ANAESTHESIA
     Route: 042

REACTIONS (1)
  - Transient aphasia [Recovered/Resolved]
